FAERS Safety Report 6985839-0 (Version None)
Quarter: 2010Q3

REPORT INFORMATION
  Report Type: 
  Country: None (occurrence: None)
  Receive Date: 20100915
  Receipt Date: 20100903
  Transmission Date: 20110219
  Serious: Yes (Hospitalization)
  Sender: FDA-Public Use
  Company Number: BE-SANOFI-AVENTIS-2010SA028599

PATIENT
  Age: 65 Year
  Sex: Female
  Weight: 50 kg

DRUGS (11)
  1. OXALIPLATIN [Suspect]
     Indication: RECTAL CANCER
     Route: 041
  2. CAPECITABINE [Suspect]
     Indication: RECTAL CANCER
     Route: 048
     Dates: start: 20090916
  3. CAPECITABINE [Suspect]
     Route: 048
     Dates: end: 20100426
  4. THERAPEUTIC RADIOPHARMACEUTICALS [Suspect]
     Indication: RECTAL CANCER
     Dosage: 28 FRACTIONS OF 1.8 GY TOTAL 50.4 GY
     Dates: end: 20091021
  5. NOBITEN [Concomitant]
     Dates: start: 20091210
  6. SIMVASTATIN [Concomitant]
     Dates: start: 20041203
  7. ASPIRINE [Concomitant]
     Dates: start: 19990101
  8. LORAZEPAM [Concomitant]
     Indication: INSOMNIA
     Dates: start: 20090921
  9. LORAZEPAM [Concomitant]
     Route: 048
     Dates: start: 20091202
  10. ACETAMINOPHEN [Concomitant]
     Dates: start: 20091210
  11. MAALOX [Concomitant]
     Dates: start: 20100204

REACTIONS (3)
  - FUNGAL INFECTION [None]
  - HERPES OESOPHAGITIS [None]
  - MENINGIOMA [None]
